FAERS Safety Report 17617823 (Version 17)
Quarter: 2022Q2

REPORT INFORMATION
  Report Type: Report from Study
  Country: US (occurrence: US)
  Receive Date: 20200402
  Receipt Date: 20220611
  Transmission Date: 20220720
  Serious: Yes (Hospitalization, Other)
  Sender: FDA-Public Use
  Company Number: US-NOVARTISPH-NVSC2020US087782

PATIENT
  Sex: Female
  Weight: 61.224 kg

DRUGS (9)
  1. TREPROSTINIL [Suspect]
     Active Substance: TREPROSTINIL
     Indication: Pulmonary arterial hypertension
     Dosage: 28 NG/KG/MIN, CONT
     Route: 042
     Dates: start: 20200121
  2. TREPROSTINIL [Suspect]
     Active Substance: TREPROSTINIL
     Dosage: 60NG/KG/MIN, CONT
     Route: 042
  3. TREPROSTINIL [Suspect]
     Active Substance: TREPROSTINIL
     Dosage: 80 NG/KG/MIN, CONT
     Route: 042
  4. TREPROSTINIL [Suspect]
     Active Substance: TREPROSTINIL
     Dosage: 93NG/KG/MIN, CONT
     Route: 042
  5. TREPROSTINIL [Suspect]
     Active Substance: TREPROSTINIL
     Dosage: 85 NG/KG/MIN, CONT
     Route: 042
  6. TREPROSTINIL [Suspect]
     Active Substance: TREPROSTINIL
     Dosage: 85 NG/KG/MIN, CONT
     Route: 042
  7. TREPROSTINIL [Suspect]
     Active Substance: TREPROSTINIL
     Dosage: 85 NG/KG/MIN, CONT
     Route: 042
  8. TADALAFIL [Concomitant]
     Active Substance: TADALAFIL
     Indication: Product used for unknown indication
     Dosage: UNK
     Route: 065
  9. AMBRISENTAN [Concomitant]
     Active Substance: AMBRISENTAN
     Indication: Product used for unknown indication
     Dosage: UNK
     Route: 065

REACTIONS (18)
  - Nasopharyngitis [Unknown]
  - Pyrexia [Unknown]
  - Hypoxia [Unknown]
  - Dehydration [Unknown]
  - Hypotension [Unknown]
  - Oxygen saturation decreased [Unknown]
  - Dyspnoea [Unknown]
  - Vascular device infection [Unknown]
  - Catheter site thrombosis [Unknown]
  - Skin exfoliation [Recovering/Resolving]
  - Blister [Recovering/Resolving]
  - Suture rupture [Unknown]
  - Weight decreased [Unknown]
  - Complication associated with device [Recovered/Resolved]
  - Diarrhoea [Unknown]
  - Erythema [Recovering/Resolving]
  - Pruritus [Recovering/Resolving]
  - Product leakage [Unknown]
